FAERS Safety Report 13501019 (Version 2)
Quarter: 2017Q4

REPORT INFORMATION
  Report Type: Spontaneous
  Country: US (occurrence: US)
  Receive Date: 20170501
  Receipt Date: 20171027
  Transmission Date: 20180320
  Serious: No
  Sender: FDA-Public Use
  Company Number: US-ROCHE-1849840

PATIENT
  Age: 52 Year
  Sex: Male

DRUGS (2)
  1. ERIVEDGE [Suspect]
     Active Substance: VISMODEGIB
     Indication: BASAL CELL CARCINOMA
     Route: 048
     Dates: start: 20160810
  2. ESBRIET [Suspect]
     Active Substance: PIRFENIDONE
     Indication: BASAL CELL CARCINOMA
     Dosage: 150 MG, 1 PO DAILY ;ONGOING: YES
     Route: 048
     Dates: start: 20160810

REACTIONS (5)
  - Nausea [Not Recovered/Not Resolved]
  - Arthralgia [Not Recovered/Not Resolved]
  - Headache [Not Recovered/Not Resolved]
  - Dysgeusia [Not Recovered/Not Resolved]
  - Muscle spasms [Not Recovered/Not Resolved]

NARRATIVE: CASE EVENT DATE: 20160810
